FAERS Safety Report 6217563-6 (Version None)
Quarter: 2009Q2

REPORT INFORMATION
  Report Type: 
  Country: None (occurrence: None)
  Receive Date: 20090608
  Receipt Date: 20090219
  Transmission Date: 20091009
  Serious: No
  Sender: FDA-Public Use
  Company Number: A0770028A

PATIENT
  Sex: Female

DRUGS (1)
  1. WELLBUTRIN XL [Suspect]
     Indication: DRUG USE FOR UNKNOWN INDICATION
     Dosage: 300MG PER DAY
     Route: 048

REACTIONS (6)
  - ABNORMAL DREAMS [None]
  - ANGER [None]
  - APATHY [None]
  - FEAR [None]
  - FEELING OF RELAXATION [None]
  - HYPERSOMNIA [None]
